FAERS Safety Report 6113364-8 (Version None)
Quarter: 2009Q1

REPORT INFORMATION
  Report Type: 
  Country: None (occurrence: None)
  Receive Date: 20090312
  Receipt Date: 20090305
  Transmission Date: 20090719
  Serious: Yes (Other)
  Sender: FDA-Public Use
  Company Number: GB-ABBOTT-09P-167-0560685-00

PATIENT
  Age: 62 Year
  Sex: Female
  Weight: 125 kg

DRUGS (1)
  1. REDUCTIL 10MG [Suspect]
     Indication: OBESITY
     Dates: start: 20081129, end: 20090121

REACTIONS (3)
  - DEPRESSED MOOD [None]
  - DEPRESSION [None]
  - SUICIDAL IDEATION [None]
